FAERS Safety Report 16200701 (Version 3)
Quarter: 2020Q2

REPORT INFORMATION
  Report Type: Report from Study
  Country: JP (occurrence: JP)
  Receive Date: 20190416
  Receipt Date: 20200424
  Transmission Date: 20200713
  Serious: Yes (Other)
  Sender: FDA-Public Use
  Company Number: JP-BIOGEN-2019BI00724947

PATIENT
  Age: 59 Year
  Sex: Male
  Weight: 61.6 kg

DRUGS (18)
  1. SPINRAZA [Suspect]
     Active Substance: NUSINERSEN
     Route: 037
     Dates: start: 20190228
  2. TENOZET [Concomitant]
     Active Substance: TENOFOVIR DISOPROXIL FUMARATE
     Indication: HEPATITIS B
     Route: 048
  3. MAGCOROL P [Concomitant]
     Active Substance: MAGNESIUM CITRATE
     Indication: ENDOSCOPY GASTROINTESTINAL
     Route: 048
     Dates: start: 20181001, end: 20181001
  4. PROCAINE HYDROCHLORIDE [Concomitant]
     Active Substance: PROCAINE HYDROCHLORIDE
     Indication: ANAESTHESIA PROCEDURE
     Route: 058
  5. SPINRAZA [Suspect]
     Active Substance: NUSINERSEN
     Route: 037
     Dates: start: 20180927, end: 20180927
  6. DERMOVATE [Concomitant]
     Active Substance: CLOBETASOL
     Dosage: QUANTUM SUFFICIT
     Route: 062
  7. SENNOSIDE [Concomitant]
     Active Substance: SENNOSIDES
     Indication: ENDOSCOPY GASTROINTESTINAL
     Route: 048
     Dates: start: 20181001, end: 20181001
  8. LOXOMARIN [Concomitant]
     Active Substance: LOXOPROFEN
     Indication: PAIN
     Route: 048
     Dates: start: 20200220
  9. DERMOVATE [Concomitant]
     Active Substance: CLOBETASOL
     Indication: RASH
     Dosage: QUANTUM SUFFICIT
     Route: 062
     Dates: end: 20180912
  10. HALCION [Concomitant]
     Active Substance: TRIAZOLAM
     Route: 048
     Dates: start: 20181104
  11. DERMOVATE [Concomitant]
     Active Substance: CLOBETASOL
     Dosage: QUANTUM SUFFICIT
     Route: 062
  12. LOXOPROFEN [Concomitant]
     Active Substance: LOXOPROFEN
     Indication: PAIN
     Dosage: PRN
     Route: 048
     Dates: end: 20200219
  13. NIFLEC [Concomitant]
     Active Substance: POLYETHYLENE GLYCOLS\POTASSIUM CHLORIDE\SODIUM BICARBONATE\SODIUM CHLORIDE\SODIUM SULFATE ANHYDROUS
     Indication: ENDOSCOPY GASTROINTESTINAL
     Route: 048
     Dates: start: 20181002, end: 20181002
  14. GASCON [Concomitant]
     Active Substance: DIMETHICONE
     Indication: ENDOSCOPY GASTROINTESTINAL
     Route: 048
     Dates: start: 20181002, end: 20181002
  15. SPINRAZA [Suspect]
     Active Substance: NUSINERSEN
     Indication: SPINAL MUSCULAR ATROPHY
     Route: 037
     Dates: start: 2018
  16. TRIAZOLAM. [Concomitant]
     Active Substance: TRIAZOLAM
     Indication: INSOMNIA
     Route: 048
     Dates: start: 20180913, end: 20181103
  17. HALCION [Concomitant]
     Active Substance: TRIAZOLAM
     Indication: INSOMNIA
     Dosage: PRN
     Route: 048
     Dates: end: 20180911
  18. REBAMIPIDE [Concomitant]
     Active Substance: REBAMIPIDE
     Indication: PROPHYLAXIS
     Route: 048
     Dates: start: 20180913

REACTIONS (5)
  - Pulmonary tuberculosis [Recovered/Resolved]
  - Constipation [Not Recovered/Not Resolved]
  - Peripheral coldness [Not Recovered/Not Resolved]
  - Back pain [Recovered/Resolved]
  - Headache [Recovered/Resolved]

NARRATIVE: CASE EVENT DATE: 20180410
